FAERS Safety Report 5235297-1 (Version None)
Quarter: 2007Q1

REPORT INFORMATION
  Report Type: 
  Country: None (occurrence: None)
  Receive Date: 20070207
  Receipt Date: 20070207
  Transmission Date: 20070707
  Serious: No
  Sender: FDA-Public Use
  Company Number: None

PATIENT
  Age: 76 Year
  Sex: Male
  Weight: 84.9 kg

DRUGS (5)
  1. ARICEPT [Suspect]
  2. ATENOLOL [Concomitant]
  3. SIMVASTATIN [Concomitant]
  4. PANTOPRAZOLE NA [Concomitant]
  5. CLOPIDOGREL BISULFATE [Concomitant]

REACTIONS (1)
  - DELIRIUM [None]
